FAERS Safety Report 17550859 (Version 4)
Quarter: 2020Q2

REPORT INFORMATION
  Report Type: Spontaneous
  Country: PT (occurrence: PT)
  Receive Date: 20200317
  Receipt Date: 20200508
  Transmission Date: 20200713
  Serious: Yes (Life-Threatening, Hospitalization, Disabling, Other)
  Sender: FDA-Public Use
  Company Number: PT-MYLANLABS-2020M1028434

PATIENT
  Age: 81 Year
  Sex: Female

DRUGS (2)
  1. METFORMIN [Suspect]
     Active Substance: METFORMIN HYDROCHLORIDE
     Indication: TYPE 2 DIABETES MELLITUS
     Dosage: 500 MILLIGRAM, QD
     Route: 048
  2. METFORMIN [Suspect]
     Active Substance: METFORMIN HYDROCHLORIDE
     Dosage: 1000 MILLIGRAM, QD
     Route: 048

REACTIONS (9)
  - Hyperglycaemia [Unknown]
  - Metabolic acidosis [Unknown]
  - Blood creatine increased [Unknown]
  - Seizure [Recovering/Resolving]
  - Coma acidotic [Recovering/Resolving]
  - Altered state of consciousness [Recovering/Resolving]
  - Fatigue [Recovering/Resolving]
  - Lactic acidosis [Recovering/Resolving]
  - Blood lactic acid increased [Unknown]
